FAERS Safety Report 7636772-2 (Version None)
Quarter: 2011Q3

REPORT INFORMATION
  Report Type: 
  Country: None (occurrence: None)
  Receive Date: 20110722
  Receipt Date: 20110722
  Transmission Date: 20111222
  Serious: Yes (Other)
  Sender: FDA-Public Use
  Company Number: None

PATIENT
  Age: 66 Year
  Sex: Female
  Weight: 69.8539 kg

DRUGS (2)
  1. GABAPENTIN [Suspect]
     Indication: SCIATIC NERVE NEUROPATHY
     Dosage: 300MG 1 DAILY SWALLOW
     Route: 048
     Dates: start: 20100801, end: 20110601
  2. GABAPENTIN [Suspect]
     Indication: SLEEP DISORDER
     Dosage: 300MG 1 DAILY SWALLOW
     Route: 048
     Dates: start: 20100801, end: 20110601

REACTIONS (2)
  - TINNITUS [None]
  - WEIGHT INCREASED [None]
